FAERS Safety Report 7200297-9 (Version None)
Quarter: 2010Q4

REPORT INFORMATION
  Report Type: 
  Country: None (occurrence: None)
  Receive Date: 20101228
  Receipt Date: 20101220
  Transmission Date: 20110411
  Serious: Yes (Other)
  Sender: FDA-Public Use
  Company Number: B0690005A

PATIENT
  Age: 59 Year
  Sex: Female

DRUGS (5)
  1. REQUIP XL [Suspect]
     Indication: PARKINSON'S DISEASE
     Dosage: 16MG PER DAY
     Route: 048
     Dates: start: 20090120
  2. MADOPAR [Concomitant]
     Indication: PARKINSON'S DISEASE
     Dosage: 250MG PER DAY
     Route: 048
     Dates: start: 20091012
  3. STALEVO [Concomitant]
     Indication: PARKINSON'S DISEASE
     Dosage: 1300MG PER DAY
     Route: 048
     Dates: start: 20091012
  4. STALEVO [Concomitant]
     Dosage: 1175MG PER DAY
     Route: 048
     Dates: start: 20091012, end: 20091026
  5. STALEVO [Concomitant]
     Dosage: 1050IUAX PER DAY
     Route: 048
     Dates: start: 20091002, end: 20091012

REACTIONS (3)
  - HYPOAESTHESIA [None]
  - PARAESTHESIA [None]
  - PRODUCT FORMULATION ISSUE [None]
